FAERS Safety Report 9500098 (Version 1)
Quarter: 2013Q3

REPORT INFORMATION
  Report Type: Report from Study
  Country: AU (occurrence: AU)
  Receive Date: 20130905
  Receipt Date: 20130905
  Transmission Date: 20140515
  Serious: Yes (Other)
  Sender: FDA-Public Use
  Company Number: PHHY2013AU095580

PATIENT
  Age: 32 Year
  Sex: Male

DRUGS (11)
  1. SIMULECT [Suspect]
     Indication: RENAL TRANSPLANT
  2. NEORAL [Suspect]
     Indication: RENAL TRANSPLANT
  3. TACROLIMUS [Concomitant]
     Indication: KIDNEY TRANSPLANT REJECTION
     Dosage: UNK UKN, UNK
  4. TACROLIMUS [Concomitant]
     Dosage: 3 MG, BID
  5. TACROLIMUS [Concomitant]
     Dosage: 8 MG, BID
  6. SIROLIMUS [Concomitant]
     Indication: RENAL TRANSPLANT
  7. MYCOPHENOLATE MOFETIL [Concomitant]
     Indication: RENAL TRANSPLANT
     Dosage: UNK UKN, UNK
  8. PREDNISOLONE [Concomitant]
     Indication: RENAL TRANSPLANT
     Dosage: UNK UKN, UNK
  9. PREDNISOLONE [Concomitant]
     Indication: ARTHRITIS
     Dosage: 5 MG, QD
  10. PREDNISOLONE [Concomitant]
     Dosage: 50 MG, QD
  11. PREDNISOLONE [Concomitant]
     Dosage: 25 MG, UNK

REACTIONS (23)
  - Iritis [Unknown]
  - Eye pain [Unknown]
  - Pancytopenia [Unknown]
  - Nephropathy toxic [Unknown]
  - Arthritis [Not Recovered/Not Resolved]
  - Arthralgia [Recovering/Resolving]
  - Tendonitis [Unknown]
  - Pain in extremity [Unknown]
  - Local swelling [Unknown]
  - Fatigue [Unknown]
  - Dyspnoea exertional [Unknown]
  - Mycobacterial infection [Unknown]
  - Cyst [Unknown]
  - Nodule [Unknown]
  - Rhinalgia [Recovered/Resolved]
  - Inflammation [Unknown]
  - Nasal cavity mass [Recovered/Resolved]
  - Nasal discomfort [Unknown]
  - Epistaxis [Unknown]
  - Wound infection staphylococcal [Unknown]
  - Kidney transplant rejection [Unknown]
  - Granuloma [Unknown]
  - Drug ineffective [Unknown]
